FAERS Safety Report 24593790 (Version 1)
Quarter: 2024Q4

REPORT INFORMATION
  Report Type: Spontaneous
  Country: US (occurrence: US)
  Receive Date: 20241108
  Receipt Date: 20241108
  Transmission Date: 20250115
  Serious: Yes (Other)
  Sender: GALDERMA
  Company Number: US-GALDERMA-US2024016078

PATIENT

DRUGS (1)
  1. NEMLUVIO [Suspect]
     Active Substance: NEMOLIZUMAB-ILTO
     Dosage: UNK MILLIGRAM
     Route: 058
     Dates: start: 20240912, end: 20240912

REACTIONS (1)
  - Hepatic cancer [Not Recovered/Not Resolved]
